FAERS Safety Report 10994935 (Version 1)
Quarter: 2015Q2

REPORT INFORMATION
  Report Type: Spontaneous
  Country: GB (occurrence: GB)
  Receive Date: 20150407
  Receipt Date: 20150407
  Transmission Date: 20150821
  Serious: Yes (Disabling)
  Sender: FDA-Public Use
  Company Number: GB-ELI_LILLY_AND_COMPANY-GB201503009242

PATIENT
  Age: 100 Year
  Sex: Female
  Weight: 61 kg

DRUGS (6)
  1. GLYCERYL TRINITRATE [Concomitant]
     Active Substance: NITROGLYCERIN
     Dosage: USE 1 PUFF UNDER THE TONGUE AS NEEDED
     Dates: start: 20140915
  2. TIMOLOL [Concomitant]
     Active Substance: TIMOLOL
     Dosage: 2 GTT, QD
     Route: 050
     Dates: start: 20141110
  3. PARACETAMOL [Concomitant]
     Active Substance: ACETAMINOPHEN
  4. CLENIL MODULITE [Concomitant]
     Active Substance: BECLOMETHASONE DIPROPIONATE
     Dosage: 2 DF, BID
     Dates: start: 20141110
  5. DIMETICONE [Concomitant]
     Active Substance: DIMETHICONE
     Dosage: APPLY AS DIRECTED
     Dates: start: 20141215
  6. FLUOXETINE [Suspect]
     Active Substance: FLUOXETINE\FLUOXETINE HYDROCHLORIDE
     Indication: PRODUCT USED FOR UNKNOWN INDICATION
     Dosage: 1 DF, QD
     Route: 065
     Dates: start: 20150224

REACTIONS (2)
  - Confusional state [Recovered/Resolved]
  - Somnolence [Recovered/Resolved]

NARRATIVE: CASE EVENT DATE: 20150318
